FAERS Safety Report 8818059 (Version 1)
Quarter: 2012Q4

REPORT INFORMATION
  Report Type: 
  Country: US (occurrence: US)
  Receive Date: 20121001
  Receipt Date: 20121001
  Transmission Date: 20130627
  Serious: Yes (Other)
  Sender: FDA-Public Use
  Company Number: US-ASTRAZENECA-2012SE74288

PATIENT
  Age: 50 Year
  Sex: Male

DRUGS (3)
  1. NEXIUM [Suspect]
     Route: 048
  2. PRILOSEC OTC [Suspect]
     Route: 048
  3. PREVACID [Suspect]
     Route: 065

REACTIONS (6)
  - Pharyngeal neoplasm [Unknown]
  - Dysphonia [Unknown]
  - Disease recurrence [Unknown]
  - Viral infection [Unknown]
  - Malaise [Unknown]
  - Drug dose omission [Unknown]
